FAERS Safety Report 16944784 (Version 1)
Quarter: 2019Q4

REPORT INFORMATION
  Report Type: Spontaneous
  Country: US (occurrence: US)
  Receive Date: 20191022
  Receipt Date: 20191022
  Transmission Date: 20200122
  Serious: No
  Sender: FDA-Public Use
  Company Number: US-GLAXOSMITHKLINE-US2019184348

PATIENT
  Sex: Female

DRUGS (1)
  1. ANORO ELLIPTA [Suspect]
     Active Substance: UMECLIDINIUM BROMIDE\VILANTEROL TRIFENATATE
     Indication: CHRONIC OBSTRUCTIVE PULMONARY DISEASE
     Dosage: 1 PUFF(S), 1D
     Route: 065
     Dates: start: 2017

REACTIONS (6)
  - Product dose omission [Unknown]
  - Oropharyngeal pain [Not Recovered/Not Resolved]
  - Weight increased [Recovering/Resolving]
  - Wrong technique in device usage process [Unknown]
  - Dysphonia [Recovering/Resolving]
  - Back pain [Recovering/Resolving]
